FAERS Safety Report 7451079-4 (Version None)
Quarter: 2011Q2

REPORT INFORMATION
  Report Type: 
  Country: None (occurrence: None)
  Receive Date: 20110422
  Receipt Date: 20110414
  Transmission Date: 20111010
  Serious: Yes (Hospitalization)
  Sender: FDA-Public Use
  Company Number: 890514

PATIENT
  Age: 75 Year
  Sex: Male
  Weight: 63.04 kg

DRUGS (16)
  1. FENTANYL [Concomitant]
  2. FERROUS SULFATE TAB [Concomitant]
  3. CYCLOPHOSPHAMIDE [Suspect]
     Indication: DIFFUSE LARGE B-CELL LYMPHOMA
     Dosage: 750 MG/M2, OTHER
     Route: 050
     Dates: start: 20090123, end: 20090313
  4. PREDNISONE [Suspect]
     Indication: DIFFUSE LARGE B-CELL LYMPHOMA
     Dosage: 100 MG, OTHER ORAL
     Route: 048
     Dates: start: 20090123, end: 20090313
  5. RITUXAN [Suspect]
     Indication: DIFFUSE LARGE B-CELL LYMPHOMA
     Dosage: 375 MG/M2, OTHER INTRAVENOUS
     Route: 042
     Dates: start: 20090123, end: 20090313
  6. HYDROMORPHONE HCL [Concomitant]
  7. MARINOL [Concomitant]
  8. PREDNISONE [Concomitant]
  9. OMEPRAZOLE [Concomitant]
  10. DOXORUBICIN HYDROCHLORIDE [Suspect]
     Indication: DIFFUSE LARGE B-CELL LYMPHOMA
     Dosage: 50 MG/M2, OTHER INTRAVENOUS
     Route: 042
     Dates: start: 20090123, end: 20090313
  11. ENZASTAURIN [Suspect]
     Indication: DIFFUSE LARGE B-CELL LYMPHOMA
     Dosage: 1125 MG; DAILY (1/D), 500 MG, DAILY (1/D) ORAL
     Route: 048
     Dates: start: 20090125, end: 20090319
  12. ENZASTAURIN [Suspect]
     Indication: DIFFUSE LARGE B-CELL LYMPHOMA
     Dosage: 1125 MG; DAILY (1/D), 500 MG, DAILY (1/D) ORAL
     Route: 048
     Dates: start: 20090124, end: 20090124
  13. STOMATOLOGICALS, MOUTH PREPARATIONS [Concomitant]
  14. MEGESTROL ACETATE [Concomitant]
  15. VINCRISTINE SULFATE [Suspect]
     Indication: DIFFUSE LARGE B-CELL LYMPHOMA
     Dosage: 1.4 MG/M2, OTHER, INTRAVENOUS
     Route: 042
     Dates: start: 20090123, end: 20090313
  16. ZOFRAN [Concomitant]

REACTIONS (15)
  - NEUTROPENIA [None]
  - TOXICITY TO VARIOUS AGENTS [None]
  - DYSPNOEA [None]
  - PULMONARY OEDEMA [None]
  - CARDIOMEGALY [None]
  - HYPOTENSION [None]
  - ESCHERICHIA TEST POSITIVE [None]
  - ANAEMIA [None]
  - CULTURE URINE POSITIVE [None]
  - SUPRAVENTRICULAR TACHYCARDIA [None]
  - BLOOD POTASSIUM DECREASED [None]
  - HYPOPHAGIA [None]
  - DEHYDRATION [None]
  - BLOOD SODIUM DECREASED [None]
  - LOBAR PNEUMONIA [None]
